FAERS Safety Report 20876502 (Version 1)
Quarter: 2022Q2

REPORT INFORMATION
  Report Type: Report from Study
  Country: AU (occurrence: AU)
  Receive Date: 20220526
  Receipt Date: 20220526
  Transmission Date: 20220721
  Serious: Yes (Other)
  Sender: FDA-Public Use
  Company Number: AU-MYLANLABS-2022M1038500

PATIENT
  Age: 60 Year
  Sex: Male

DRUGS (3)
  1. CARBIDOPA\LEVODOPA [Suspect]
     Active Substance: CARBIDOPA\LEVODOPA
     Indication: Primary familial brain calcification
     Dosage: UNK
     Route: 065
  2. BENSERAZIDE\LEVODOPA [Suspect]
     Active Substance: BENSERAZIDE\LEVODOPA
     Indication: Primary familial brain calcification
     Dosage: UNK
     Route: 048
  3. BENSERAZIDE\LEVODOPA [Suspect]
     Active Substance: BENSERAZIDE\LEVODOPA
     Dosage: RE-CHALLENGE WITH LEVODOPA/BENSERAZIDE
     Route: 048

REACTIONS (2)
  - Colitis microscopic [Recovered/Resolved]
  - Off label use [Unknown]
